FAERS Safety Report 10896056 (Version 1)
Quarter: 2015Q1

REPORT INFORMATION
  Report Type: Other
  Country: NL (occurrence: NL)
  Receive Date: 20150308
  Receipt Date: 20150308
  Transmission Date: 20150721
  Serious: Yes (Other)
  Sender: FDA-Public Use
  Company Number: NL-MYLANLABS-2015M1006027

PATIENT

DRUGS (9)
  1. ACETYLSALICYLZUUR MYLAN TABLET 80MG [Concomitant]
     Dosage: 80 MG, QD (1DD1)
     Route: 048
  2. SPIRONOLACTON MYLAN 25 MG TABLETTEN [Suspect]
     Active Substance: SPIRONOLACTONE
     Indication: FLUID RETENTION
     Dosage: 25 MG, QD (1 KEER PER DAG 1 STUK(S))
     Route: 048
     Dates: start: 20150111
  3. LASIX [Suspect]
     Active Substance: FUROSEMIDE
     Indication: FLUID RETENTION
     Dosage: 500 MG, QD (1 KEER PER DAG 1.5 STUK(S))
     Route: 048
     Dates: start: 20150106
  4. METOPROLOLSUCCINAAT SANDOZ RET 100 TABL MGA  95MG [Concomitant]
     Dosage: 50 MG, QD (1DD0,5T)
     Route: 048
  5. NOVORAPID FLEXPEN INJVLST 100E/ML PEN 3ML [Concomitant]
     Dosage: DOSERING AAN DE HAND VAN BLOEDSUIKERSPIEGEL
     Route: 058
  6. INSULATARD PENFILL INJ 100IE/ML PATR 3ML [Concomitant]
     Dosage: DOSERING AAAN DE HAND VAN BLOEDSUIKERSPIEGEL
     Route: 058
  7. INEGY TABLET 10/20MG [Concomitant]
     Dosage: 1 DF, QD (1DD1)
     Route: 048
  8. OMNIC OCAS TABLET MVA 0,4MG [Concomitant]
     Dosage: 0.4 MG, QD (1DD1)
     Route: 048
  9. LISINOPRIL ACCORD TABLET 20MG [Interacting]
     Active Substance: LISINOPRIL
     Indication: HYPERTENSION
     Dosage: 20 MG, QD (1 KEER PER DAG 1 STUK(S))
     Route: 048
     Dates: start: 20100211

REACTIONS (4)
  - Dysgeusia [None]
  - Burning sensation [Not Recovered/Not Resolved]
  - Epistaxis [Not Recovered/Not Resolved]
  - Drug interaction [Not Recovered/Not Resolved]

NARRATIVE: CASE EVENT DATE: 20150112
